FAERS Safety Report 16708434 (Version 1)
Quarter: 2019Q3

REPORT INFORMATION
  Report Type: Report from Study
  Country: US (occurrence: US)
  Receive Date: 20190816
  Receipt Date: 20190816
  Transmission Date: 20191004
  Serious: Yes (Other)
  Sender: FDA-Public Use
  Company Number: US-ROCHE-2380965

PATIENT
  Sex: Female

DRUGS (1)
  1. CELLCEPT [Suspect]
     Active Substance: MYCOPHENOLATE MOFETIL\MYCOPHENOLATE MOFETIL HYDROCHLORIDE
     Indication: PANCREAS TRANSPLANT
     Dosage: 2 CAPSULES BID
     Route: 048

REACTIONS (6)
  - Hypersensitivity [Unknown]
  - Amnesia [Unknown]
  - Depressed level of consciousness [Unknown]
  - Intentional product use issue [Unknown]
  - Off label use [Unknown]
  - Fatigue [Unknown]
